FAERS Safety Report 11915945 (Version 2)
Quarter: 2016Q1

REPORT INFORMATION
  Report Type: Report from Study
  Country: US (occurrence: US)
  Receive Date: 20160114
  Receipt Date: 20160229
  Transmission Date: 20160526
  Serious: Yes (Death)
  Sender: FDA-Public Use
  Company Number: PHEH2016US001086

PATIENT
  Sex: Male
  Weight: 288 kg

DRUGS (2)
  1. OXYGEN. [Concomitant]
     Active Substance: OXYGEN
     Indication: CHRONIC OBSTRUCTIVE PULMONARY DISEASE
     Route: 065
  2. SANDOSTATIN LAR DEPOT [Suspect]
     Active Substance: OCTREOTIDE ACETATE
     Indication: ARTERIOVENOUS MALFORMATION
     Dosage: 20 MG, QMO
     Route: 030
     Dates: end: 20151125

REACTIONS (2)
  - Product use issue [Unknown]
  - Cardiac failure congestive [Fatal]
